FAERS Safety Report 8615648-8 (Version None)
Quarter: 2012Q3

REPORT INFORMATION
  Report Type: 
  Country: None (occurrence: None)
  Receive Date: 20120823
  Receipt Date: 20120817
  Transmission Date: 20120928
  Serious: Yes (Life-Threatening, Hospitalization, Other)
  Sender: FDA-Public Use
  Company Number: AR-BRISTOL-MYERS SQUIBB COMPANY-16871881

PATIENT
  Age: 53 Year
  Sex: Male

DRUGS (5)
  1. BLINDED: SAXAGLIPTIN [Suspect]
     Indication: TYPE 2 DIABETES MELLITUS
     Dosage: INTERRUPTED ON 5JUL11 RESUMED ON 3AUG11, INTERRUPTED ON 10JUN12 RESUMED ON 27JUN12
     Dates: start: 20110318
  2. NPH INSULIN [Suspect]
     Indication: TYPE 2 DIABETES MELLITUS
     Dates: end: 20110321
  3. METFORMIN HCL [Suspect]
     Indication: TYPE 2 DIABETES MELLITUS
  4. PLACEBO [Suspect]
     Indication: TYPE 2 DIABETES MELLITUS
     Dosage: INTERRUPTED ON 5JUL11 RESUMED ON 3AUG11, INTERRUPTED ON 10JUN12 RESUMED ON 27JUN12
     Dates: start: 20110318
  5. ASPIRIN [Concomitant]
     Dosage: 1 DF= ={100MG

REACTIONS (1)
  - RENAL FAILURE ACUTE [None]
